FAERS Safety Report 19196582 (Version 2)
Quarter: 2021Q2

REPORT INFORMATION
  Report Type: Spontaneous
  Country: US (occurrence: US)
  Receive Date: 20210429
  Receipt Date: 20210506
  Transmission Date: 20210717
  Serious: No
  Sender: FDA-Public Use
  Company Number: US-GLAXOSMITHKLINE-USCH2021AMR022855

PATIENT

DRUGS (1)
  1. ADVIL [Suspect]
     Active Substance: IBUPROFEN
     Indication: PAIN
     Dosage: UNK (TOOK TWO ADVIL)

REACTIONS (4)
  - Lip pain [Unknown]
  - Oral herpes [Unknown]
  - Dyspnoea [Unknown]
  - Rash [Recovered/Resolved]
